FAERS Safety Report 4573025-3 (Version None)
Quarter: 2005Q1

REPORT INFORMATION
  Report Type: 
  Country: None (occurrence: None)
  Receive Date: 20050204
  Receipt Date: 20050129
  Transmission Date: 20050727
  Serious: Yes (Hospitalization)
  Sender: FDA-Public Use
  Company Number: TCI2004A04682

PATIENT
  Age: 76 Year
  Sex: Female

DRUGS (5)
  1. ACTOS [Suspect]
     Indication: DIABETES MELLITUS
     Dosage: 15 MG(15 MG, 1 IN 1 D)PER ORAL
     Route: 048
     Dates: start: 20041022, end: 20041125
  2. AMARYL [Suspect]
     Dosage: 3  MG (1 IN 1 D(M, PER ORAL
     Route: 048
     Dates: end: 20041125
  3. LASIX [Suspect]
     Dosage: 20 MG (20 MG , 1 IN 1 D), PER ORAL
     Route: 048
     Dates: end: 20041208
  4. METHYLCOBAL                      (MECOBALAMIN) [Concomitant]
  5. URSODIOL [Concomitant]

REACTIONS (5)
  - ASCITES [None]
  - DIFFICULTY IN WALKING [None]
  - GENERALISED OEDEMA [None]
  - HYPOKALAEMIA [None]
  - PLEURAL EFFUSION [None]
